FAERS Safety Report 8269443-2 (Version None)
Quarter: 2012Q2

REPORT INFORMATION
  Report Type: 
  Country: None (occurrence: None)
  Receive Date: 20120409
  Receipt Date: 20120322
  Transmission Date: 20120825
  Serious: No
  Sender: FDA-Public Use
  Company Number: US-ASTRAZENECA-2012SE19786

PATIENT

DRUGS (2)
  1. METOPROLOL TARTRATE [Suspect]
  2. BRILINTA [Suspect]
     Route: 048

REACTIONS (1)
  - ATRIOVENTRICULAR BLOCK [None]
